FAERS Safety Report 12544907 (Version 1)
Quarter: 2016Q3

REPORT INFORMATION
  Report Type: Spontaneous
  Country: US (occurrence: US)
  Receive Date: 20160711
  Receipt Date: 20160711
  Transmission Date: 20161109
  Serious: Yes (Hospitalization, Other)
  Sender: FDA-Public Use
  Company Number: US-GLAXOSMITHKLINE-US2016GSK097997

PATIENT
  Age: 63 Year
  Sex: Female

DRUGS (1)
  1. VOLTAREN [Suspect]
     Active Substance: DICLOFENAC SODIUM
     Indication: PAIN IN EXTREMITY
     Dosage: UNK (APPLY 4 TIMES DAILY)
     Route: 061
     Dates: start: 20060810

REACTIONS (14)
  - Scar [Unknown]
  - Impaired driving ability [Unknown]
  - Condition aggravated [Not Recovered/Not Resolved]
  - Incorrect dosage administered [Unknown]
  - Herpes zoster [Unknown]
  - Inappropriate schedule of drug administration [Unknown]
  - Monarthritis [Not Recovered/Not Resolved]
  - Arthritis [Not Recovered/Not Resolved]
  - Drug ineffective [Unknown]
  - Blister [Unknown]
  - Asthenia [Unknown]
  - Activities of daily living impaired [Not Recovered/Not Resolved]
  - Off label use [Unknown]
  - Blood pressure increased [Not Recovered/Not Resolved]

NARRATIVE: CASE EVENT DATE: 2007
